FAERS Safety Report 16768789 (Version 1)
Quarter: 2019Q3

REPORT INFORMATION
  Report Type: Spontaneous
  Country: US (occurrence: US)
  Receive Date: 20190903
  Receipt Date: 20190903
  Transmission Date: 20191005
  Serious: No
  Sender: FDA-Public Use
  Company Number: US-SA-2019SA242000

PATIENT
  Sex: Female

DRUGS (2)
  1. LORATADINE. [Concomitant]
     Active Substance: LORATADINE
  2. DUPIXENT [Suspect]
     Active Substance: DUPILUMAB
     Indication: DERMATITIS ATOPIC
     Dosage: 300 MG, QOW
     Route: 058
     Dates: start: 20190601

REACTIONS (1)
  - Vision blurred [Unknown]
